FAERS Safety Report 21309966 (Version 3)
Quarter: 2023Q4

REPORT INFORMATION
  Report Type: Spontaneous
  Country: RU (occurrence: RU)
  Receive Date: 20220909
  Receipt Date: 20231006
  Transmission Date: 20240110
  Serious: Yes (Other)
  Sender: FDA-Public Use
  Company Number: RU-JNJFOC-20220864888

PATIENT
  Age: 5 Decade
  Sex: Male
  Weight: 55 kg

DRUGS (21)
  1. SIRTURO [Suspect]
     Active Substance: BEDAQUILINE FUMARATE
     Indication: Tuberculosis
     Route: 048
     Dates: start: 20220629, end: 20220826
  2. SIRTURO [Suspect]
     Active Substance: BEDAQUILINE FUMARATE
     Route: 048
     Dates: start: 20220927
  3. SIRTURO [Suspect]
     Active Substance: BEDAQUILINE FUMARATE
     Dosage: DOSE: 0.2
     Route: 048
     Dates: start: 20230119, end: 20230206
  4. SIRTURO [Suspect]
     Active Substance: BEDAQUILINE FUMARATE
     Route: 048
     Dates: start: 20230221
  5. SIRTURO [Suspect]
     Active Substance: BEDAQUILINE FUMARATE
     Route: 048
     Dates: start: 20230310
  6. SIRTURO [Suspect]
     Active Substance: BEDAQUILINE FUMARATE
     Dosage: DOSE: 0.2
     Route: 048
     Dates: start: 20220629, end: 20230403
  7. CLOFAZIMINE [Suspect]
     Active Substance: CLOFAZIMINE
     Indication: Tuberculosis
     Route: 065
     Dates: start: 20220629, end: 20220826
  8. CLOFAZIMINE [Suspect]
     Active Substance: CLOFAZIMINE
     Dosage: DOSE: 0.1
     Route: 048
     Dates: end: 20230310
  9. CLOFAZIMINE [Suspect]
     Active Substance: CLOFAZIMINE
     Dosage: DOSE: 0.1
     Route: 048
     Dates: end: 20230613
  10. LEVOFLOXACIN [Suspect]
     Active Substance: LEVOFLOXACIN
     Indication: Tuberculosis
     Route: 065
     Dates: start: 20220629, end: 20220826
  11. LEVOFLOXACIN [Suspect]
     Active Substance: LEVOFLOXACIN
     Dosage: DOSE: 1.0
     Route: 048
     Dates: end: 20230310
  12. LEVOFLOXACIN [Suspect]
     Active Substance: LEVOFLOXACIN
     Dosage: DOSE: 1.0
     Route: 048
     Dates: end: 20230613
  13. LINEZOLID [Suspect]
     Active Substance: LINEZOLID
     Indication: Tuberculosis
     Route: 065
     Dates: start: 20220629, end: 20220826
  14. LINEZOLID [Suspect]
     Active Substance: LINEZOLID
     Dosage: DOSE: 0.6
     Route: 048
     Dates: end: 20230310
  15. LINEZOLID [Suspect]
     Active Substance: LINEZOLID
     Dosage: DOSE: 0.6
     Route: 048
     Dates: end: 20230613
  16. OMEPRAZOLE [Concomitant]
     Active Substance: OMEPRAZOLE
     Indication: Gastrointestinal disorder therapy
     Route: 048
     Dates: start: 20220629, end: 20230613
  17. FOLIC ACID [Concomitant]
     Active Substance: FOLIC ACID
     Indication: Anaemia prophylaxis
     Route: 048
     Dates: start: 20220629
  18. FOLIC ACID [Concomitant]
     Active Substance: FOLIC ACID
     Dosage: DOSE: 0.002
     Route: 048
     Dates: start: 20220629, end: 20230613
  19. VITAMINS NOS [Concomitant]
     Active Substance: VITAMINS
     Dates: start: 20220629
  20. BENFOTIAMINE\PYRIDOXINE [Concomitant]
     Active Substance: BENFOTIAMINE\PYRIDOXINE
     Indication: Neuropathy peripheral
     Dosage: EVERY SECOND DAY
     Route: 048
     Dates: start: 20220629, end: 20230613
  21. OMEGA-3 FATTY ACIDS [Concomitant]
     Active Substance: OMEGA-3 FATTY ACIDS
     Indication: Prophylaxis
     Route: 065
     Dates: start: 20220726, end: 20230613

REACTIONS (4)
  - Transaminases increased [Recovered/Resolved]
  - Hypokalaemia [Unknown]
  - Oral candidiasis [Unknown]
  - Off label use [Unknown]

NARRATIVE: CASE EVENT DATE: 20220629
